FAERS Safety Report 8409881-8 (Version None)
Quarter: 2012Q2

REPORT INFORMATION
  Report Type: 
  Country: None (occurrence: None)
  Receive Date: 20120529
  Receipt Date: 20120516
  Transmission Date: 20120825
  Serious: Yes (Disabling, Other)
  Sender: FDA-Public Use
  Company Number: 2010MA005098

PATIENT
  Sex: Female
  Weight: 86.1834 kg

DRUGS (35)
  1. COPAXONE [Concomitant]
  2. NYSTATIN [Concomitant]
  3. TUSSIONEX [Concomitant]
  4. ZOLOFT [Concomitant]
  5. CLONAZEPAM [Concomitant]
  6. CYCLOBENZAPRINE [Concomitant]
  7. PRILOSEC [Concomitant]
  8. KAPIDEX [Concomitant]
  9. KLONOPIN [Concomitant]
  10. METAMUCIL-2 [Concomitant]
  11. TYLENOL W/ CODEINE NO. 3 [Concomitant]
  12. ASPIRIN [Concomitant]
  13. AXID [Concomitant]
  14. BEANO [Concomitant]
  15. CHRONULAC SYRUP [Concomitant]
  16. PERDIUM [Concomitant]
  17. LEXAPRO [Concomitant]
  18. NEXIUM [Concomitant]
  19. PROTONIX [Concomitant]
  20. EFFEXOR [Concomitant]
  21. FLUCONAZOLE [Concomitant]
  22. PRISTIQ [Concomitant]
  23. PROVIGIL [Concomitant]
  24. ACETAMINOPHEN [Concomitant]
  25. ALPRAZOLAM [Concomitant]
  26. FIBERCON [Concomitant]
  27. NULEV [Concomitant]
  28. PROPULSID [Concomitant]
  29. METOCLOPRAMIDE [Suspect]
     Indication: DYSAESTHESIA
     Dosage: 10 MG;TID;PO
     Route: 048
     Dates: start: 20010222, end: 20090501
  30. METOCLOPRAMIDE [Suspect]
     Indication: GASTROOESOPHAGEAL REFLUX DISEASE
     Dosage: 10 MG;TID;PO
     Route: 048
     Dates: start: 20010222, end: 20090501
  31. CODEINE SULFATE [Concomitant]
  32. DIAZEPAM [Concomitant]
  33. HYOMAX-SL [Concomitant]
  34. LORAZEPAM [Concomitant]
  35. PREVACID [Concomitant]

REACTIONS (51)
  - ASPIRATION [None]
  - HEPATIC STEATOSIS [None]
  - FEELING HOT [None]
  - MUSCULAR WEAKNESS [None]
  - GASTRITIS [None]
  - COLONIC POLYP [None]
  - RECTAL POLYP [None]
  - CEREBRAL SMALL VESSEL ISCHAEMIC DISEASE [None]
  - OESOPHAGEAL CANDIDIASIS [None]
  - HYPOAESTHESIA [None]
  - HEPATIC CYST [None]
  - ECONOMIC PROBLEM [None]
  - PARAESTHESIA [None]
  - TRANSIENT ISCHAEMIC ATTACK [None]
  - HYPERTENSION [None]
  - PAIN [None]
  - FATIGUE [None]
  - DYSGRAPHIA [None]
  - DYSURIA [None]
  - GAIT DISTURBANCE [None]
  - EMOTIONAL DISORDER [None]
  - CONVULSION [None]
  - ASTHENIA [None]
  - JOINT INJURY [None]
  - SPINAL OSTEOARTHRITIS [None]
  - FIBROSIS [None]
  - BARRETT'S OESOPHAGUS [None]
  - DIABETES MELLITUS [None]
  - FACIAL SPASM [None]
  - DEMYELINATION [None]
  - MULTIPLE SCLEROSIS [None]
  - MEMORY IMPAIRMENT [None]
  - STRESS [None]
  - FALL [None]
  - DYSAESTHESIA [None]
  - LOSS OF EMPLOYMENT [None]
  - COGNITIVE DISORDER [None]
  - DIZZINESS [None]
  - DISTURBANCE IN ATTENTION [None]
  - HEADACHE [None]
  - ERYTHEMA [None]
  - GASTROOESOPHAGEAL REFLUX DISEASE [None]
  - TARDIVE DYSKINESIA [None]
  - DEPRESSION [None]
  - DRUG INEFFECTIVE [None]
  - PRURITUS [None]
  - MOOD SWINGS [None]
  - VISUAL IMPAIRMENT [None]
  - LHERMITTE'S SIGN [None]
  - HIATUS HERNIA [None]
  - GASTRIC MUCOSAL HYPERTROPHY [None]
